FAERS Safety Report 6357177-0 (Version None)
Quarter: 2009Q3

REPORT INFORMATION
  Report Type: 
  Country: None (occurrence: None)
  Receive Date: 20090911
  Receipt Date: 20090819
  Transmission Date: 20100115
  Serious: Yes (Hospitalization, Other)
  Sender: FDA-Public Use
  Company Number: 2009PL000248

PATIENT
  Age: 31 Year
  Sex: Female
  Weight: 88.4514 kg

DRUGS (9)
  1. LOTRONEX [Suspect]
     Indication: IRRITABLE BOWEL SYNDROME
     Dosage: 0.5 MG; BID
     Dates: start: 20090420, end: 20090501
  2. ULTRACLEAR PLUS [Concomitant]
  3. PRENATAL [Concomitant]
  4. VITAMIN D [Concomitant]
  5. MULTI MINERALS [Concomitant]
  6. CONJUGATED LINOLEIC [Concomitant]
  7. ACID [Concomitant]
  8. ANTIOXIDANTS [Concomitant]
  9. VITAMIN B-12 SL [Concomitant]

REACTIONS (17)
  - ASTHENIA [None]
  - COELIAC DISEASE [None]
  - COLITIS ISCHAEMIC [None]
  - CONSTIPATION [None]
  - DEHYDRATION [None]
  - FATIGUE [None]
  - GASTRITIS [None]
  - INTESTINAL POLYP [None]
  - LARGE INTESTINAL ULCER [None]
  - MALAISE [None]
  - PHYTOTHERAPY [None]
  - PREGNANCY [None]
  - RECTAL POLYP [None]
  - SELENIUM DEFICIENCY [None]
  - VITAMIN B12 DEFICIENCY [None]
  - VITAMIN D DEFICIENCY [None]
  - ZINC DEFICIENCY [None]
